FAERS Safety Report 5386758-6 (Version None)
Quarter: 2007Q3

REPORT INFORMATION
  Report Type: 
  Country: None (occurrence: None)
  Receive Date: 20070713
  Receipt Date: 20070705
  Transmission Date: 20080115
  Serious: Yes (Hospitalization, Other)
  Sender: FDA-Public Use
  Company Number: BR-PFIZER INC-2005142159

PATIENT
  Sex: Female
  Weight: 75 kg

DRUGS (13)
  1. FRONTAL [Suspect]
     Indication: DEPRESSION
     Route: 048
  2. FRONTAL [Suspect]
     Indication: ANXIETY
     Route: 048
  3. FRONTAL XR [Suspect]
     Dates: start: 20050101, end: 20050101
  4. VALPROATE SODIUM [Suspect]
  5. DEPAKENE [Suspect]
     Route: 048
  6. OMEPRAZOLE [Suspect]
     Indication: GASTRITIS
     Route: 048
  7. FLUOXETINE [Suspect]
     Route: 048
  8. ALL OTHER THERAPEUTIC PRODUCTS [Concomitant]
  9. LEVONORGESTREL [Concomitant]
  10. PAROXETINE [Concomitant]
     Route: 048
  11. LEVONORGESTREL AND ETHINYL ESTRADIOL [Concomitant]
     Route: 048
  12. ETHINYL ESTRADIOL TAB [Concomitant]
  13. LUFTAL [Concomitant]
     Route: 048

REACTIONS (50)
  - ABDOMINAL DISCOMFORT [None]
  - ABDOMINAL DISTENSION [None]
  - ABDOMINAL PAIN [None]
  - ABDOMINAL PAIN UPPER [None]
  - ALOPECIA [None]
  - ANXIETY [None]
  - ARTHRALGIA [None]
  - ASTHENIA [None]
  - CONSTIPATION [None]
  - DEPRESSION [None]
  - DIARRHOEA [None]
  - DIPLOPIA [None]
  - DISORIENTATION [None]
  - DRUG INEFFECTIVE [None]
  - DRUG WITHDRAWAL SYNDROME [None]
  - DRY MOUTH [None]
  - DRY THROAT [None]
  - DYSGEUSIA [None]
  - DYSPEPSIA [None]
  - DYSURIA [None]
  - EATING DISORDER [None]
  - FLATULENCE [None]
  - FORMICATION [None]
  - GASTRITIS [None]
  - HAIR TEXTURE ABNORMAL [None]
  - HYPOKINESIA [None]
  - IMPAIRED HEALING [None]
  - INSOMNIA [None]
  - MALAISE [None]
  - MICTURITION URGENCY [None]
  - MUSCLE RIGIDITY [None]
  - MUSCULOSKELETAL PAIN [None]
  - NAIL DISORDER [None]
  - NERVOUSNESS [None]
  - NIGHTMARE [None]
  - OEDEMA PERIPHERAL [None]
  - ONYCHOCLASIS [None]
  - ORAL DISCOMFORT [None]
  - PAIN [None]
  - PAIN IN EXTREMITY [None]
  - PRURITUS [None]
  - RESTLESSNESS [None]
  - SEDATION [None]
  - SINUSITIS [None]
  - SKIN LESION [None]
  - SOMNOLENCE [None]
  - SUICIDE ATTEMPT [None]
  - TREMOR [None]
  - VISION BLURRED [None]
  - WEIGHT INCREASED [None]
